FAERS Safety Report 24879724 (Version 1)
Quarter: 2025Q1

REPORT INFORMATION
  Report Type: Report from Study
  Country: CA (occurrence: CA)
  Receive Date: 20250123
  Receipt Date: 20250123
  Transmission Date: 20250408
  Serious: Yes (Hospitalization, Other)
  Sender: TAKEDA
  Company Number: CA-TAKEDA-2025TUS005691

PATIENT
  Sex: Male

DRUGS (2)
  1. VEDOLIZUMAB [Suspect]
     Active Substance: VEDOLIZUMAB
     Indication: Crohn^s disease
  2. PREDNISONE [Concomitant]
     Active Substance: PREDNISONE

REACTIONS (7)
  - Decubitus ulcer [Unknown]
  - Prostate cancer metastatic [Unknown]
  - General physical health deterioration [Unknown]
  - Metastases to bone [Unknown]
  - Diarrhoea [Unknown]
  - Anaemia [Unknown]
  - Blood alkaline phosphatase increased [Unknown]
